FAERS Safety Report 5252374-X (Version None)
Quarter: 2007Q1

REPORT INFORMATION
  Report Type: 
  Country: None (occurrence: None)
  Receive Date: 20070301
  Receipt Date: 20060830
  Transmission Date: 20070707
  Serious: No
  Sender: FDA-Public Use
  Company Number: US-BRISTOL-MYERS SQUIBB COMPANY-13493267

PATIENT
  Age: 70 Year
  Sex: Female
  Weight: 86 kg

DRUGS (6)
  1. PARAPLATIN [Suspect]
     Indication: OVARIAN CANCER
     Route: 042
     Dates: start: 20060601
  2. TAXOL [Suspect]
  3. DEXAMETHASONE [Concomitant]
     Indication: PREMEDICATION
  4. RANITIDINE [Concomitant]
     Indication: PREMEDICATION
  5. BENADRYL [Concomitant]
     Indication: PREMEDICATION
  6. ZOFRAN [Concomitant]
     Indication: PREMEDICATION

REACTIONS (1)
  - STEVENS-JOHNSON SYNDROME [None]
